FAERS Safety Report 24333045 (Version 4)
Quarter: 2025Q3

REPORT INFORMATION
  Report Type: Report from Study
  Country: CN (occurrence: CN)
  Receive Date: 20240918
  Receipt Date: 20250813
  Transmission Date: 20251020
  Serious: Yes (Hospitalization)
  Sender: ALEXION PHARMACEUTICALS
  Company Number: CN-ALXN-202409GLO000243CN

PATIENT
  Sex: Male

DRUGS (16)
  1. SOLIRIS [Suspect]
     Active Substance: ECULIZUMAB
     Indication: Paroxysmal nocturnal haemoglobinuria
     Route: 065
     Dates: start: 20240429, end: 20240429
  2. SOLIRIS [Suspect]
     Active Substance: ECULIZUMAB
     Route: 065
     Dates: start: 20240521, end: 20240521
  3. SOLIRIS [Suspect]
     Active Substance: ECULIZUMAB
     Route: 065
     Dates: start: 20240529, end: 20240529
  4. SOLIRIS [Suspect]
     Active Substance: ECULIZUMAB
     Route: 065
     Dates: start: 20240605, end: 20240605
  5. SOLIRIS [Suspect]
     Active Substance: ECULIZUMAB
     Route: 065
     Dates: start: 20240613, end: 20240613
  6. SOLIRIS [Suspect]
     Active Substance: ECULIZUMAB
     Route: 065
     Dates: start: 20240627, end: 20240627
  7. SOLIRIS [Suspect]
     Active Substance: ECULIZUMAB
     Route: 065
     Dates: start: 20240716, end: 20240716
  8. SOLIRIS [Suspect]
     Active Substance: ECULIZUMAB
     Route: 065
     Dates: start: 20240730, end: 20240730
  9. METHYLPREDNISOLONE [Concomitant]
     Active Substance: METHYLPREDNISOLONE
     Indication: Paroxysmal nocturnal haemoglobinuria
     Route: 065
  10. FOLIC ACID [Concomitant]
     Active Substance: FOLIC ACID
     Indication: Paroxysmal nocturnal haemoglobinuria
     Route: 065
  11. TEPRENONE [Concomitant]
     Active Substance: TEPRENONE
     Indication: Chronic gastritis
     Route: 065
  12. RABEPRAZOLE SODIUM [Concomitant]
     Active Substance: RABEPRAZOLE SODIUM
     Indication: Chronic gastritis
     Route: 065
  13. Compound vitamin b [Concomitant]
     Indication: Paroxysmal nocturnal haemoglobinuria
     Route: 065
  14. PHOSPHOLIPID [Concomitant]
     Active Substance: PHOSPHOLIPID
     Indication: Prophylaxis
     Route: 065
  15. HERBALS [Concomitant]
     Active Substance: HERBALS
     Indication: Chronic kidney disease
     Route: 065
  16. ZOLPIDEM TARTRATE [Concomitant]
     Active Substance: ZOLPIDEM TARTRATE
     Indication: Sleep disorder
     Route: 065

REACTIONS (1)
  - Cystitis [Recovered/Resolved]

NARRATIVE: CASE EVENT DATE: 20240803
